FAERS Safety Report 19020030 (Version 1)
Quarter: 2021Q1

REPORT INFORMATION
  Report Type: Spontaneous
  Country: US (occurrence: US)
  Receive Date: 20210317
  Receipt Date: 20210317
  Transmission Date: 20210420
  Serious: Yes (Life-Threatening, Hospitalization)
  Sender: FDA-Public Use
  Company Number: None

PATIENT
  Age: 53 Year
  Sex: Female
  Weight: 65.25 kg

DRUGS (3)
  1. TROKENDI [Suspect]
     Active Substance: TOPIRAMATE
  2. TOPIRAMATE. [Suspect]
     Active Substance: TOPIRAMATE
     Indication: MIGRAINE
  3. TOPAMAX [Suspect]
     Active Substance: TOPIRAMATE

REACTIONS (1)
  - Pancreatic neuroendocrine tumour [None]

NARRATIVE: CASE EVENT DATE: 20191203
